FAERS Safety Report 11693375 (Version 2)
Quarter: 2016Q2

REPORT INFORMATION
  Report Type: Spontaneous
  Country: JP (occurrence: JP)
  Receive Date: 20151103
  Receipt Date: 20160427
  Transmission Date: 20160815
  Serious: Yes (Death, Life-Threatening, Hospitalization, Other)
  Sender: FDA-Public Use
  Company Number: JP-SA-2015SA173017

PATIENT
  Age: 58 Year
  Sex: Male
  Weight: 54 kg

DRUGS (7)
  1. ELPLAT [Suspect]
     Active Substance: OXALIPLATIN
     Indication: RECTAL CANCER
     Dosage: INFUSION?(122 MG/M2)
     Route: 041
     Dates: start: 20141113, end: 20141113
  2. ALOXI [Concomitant]
     Active Substance: PALONOSETRON HYDROCHLORIDE
     Dates: start: 20141113, end: 20141113
  3. RECOMODULIN [Concomitant]
     Active Substance: THROMBOMODULIN ALFA
     Dates: start: 20141202, end: 20141215
  4. VENOGLOBULIN-IH [Concomitant]
     Dates: start: 20141208, end: 20141210
  5. PROEMEND [Concomitant]
     Active Substance: FOSAPREPITANT
     Dates: start: 20141113, end: 20141113
  6. ORGADRONE [Concomitant]
     Active Substance: DEXAMETHASONE SODIUM PHOSPHATE
     Dates: start: 20141113, end: 20141113
  7. XELODA [Suspect]
     Active Substance: CAPECITABINE
     Indication: RECTAL CANCER
     Route: 048
     Dates: start: 20141113, end: 20141120

REACTIONS (11)
  - Platelet count decreased [Unknown]
  - Dehydration [Unknown]
  - Pneumonia [Fatal]
  - Atrial fibrillation [Unknown]
  - Tachycardia [Unknown]
  - Feeding disorder [Unknown]
  - Febrile neutropenia [Recovered/Resolved]
  - Stomatitis [Recovered/Resolved]
  - Diarrhoea [Recovered/Resolved]
  - Pneumonia [Recovered/Resolved]
  - Cardiac arrest [Fatal]

NARRATIVE: CASE EVENT DATE: 20141120
